FAERS Safety Report 15373666 (Version 1)
Quarter: 2018Q3

REPORT INFORMATION
  Report Type: Spontaneous
  Country: US (occurrence: US)
  Receive Date: 20180912
  Receipt Date: 20180912
  Transmission Date: 20181010
  Serious: Yes (Other)
  Sender: FDA-Public Use
  Company Number: US-PFIZER INC-2018363117

PATIENT
  Sex: Male

DRUGS (2)
  1. GABAPENTIN. [Suspect]
     Active Substance: GABAPENTIN
     Dosage: UNK
  2. SUBOXONE [Suspect]
     Active Substance: BUPRENORPHINE HYDROCHLORIDE\NALOXONE HYDROCHLORIDE
     Dosage: UNK

REACTIONS (6)
  - Drug abuse [Unknown]
  - Prescription drug used without a prescription [Unknown]
  - Eyelid ptosis [Unknown]
  - Dysarthria [Unknown]
  - Eye disorder [Unknown]
  - Gait disturbance [Unknown]
